FAERS Safety Report 11009212 (Version 1)
Quarter: 2015Q2

REPORT INFORMATION
  Report Type: Spontaneous
  Country: US (occurrence: None)
  Receive Date: 20150409
  Receipt Date: 20150409
  Transmission Date: 20150821
  Serious: Yes (Disabling)
  Sender: FDA-Public Use
  Company Number: None

PATIENT
  Age: 37 Year
  Sex: Female

DRUGS (2)
  1. METHAMPHETAMINE [Suspect]
     Active Substance: METHAMPHETAMINE
     Indication: HYPERSOMNIA
     Dosage: 4 PILLS, FOUR TIMES DAILY, TAKEN BY MOUTH
     Route: 048
  2. METHAMPHETAMINE [Concomitant]
     Active Substance: METHAMPHETAMINE

REACTIONS (1)
  - Product use issue [None]

NARRATIVE: CASE EVENT DATE: 20150408
